FAERS Safety Report 7111306-X (Version None)
Quarter: 2010Q4

REPORT INFORMATION
  Report Type: 
  Country: None (occurrence: None)
  Receive Date: 20101118
  Receipt Date: 20101115
  Transmission Date: 20110411
  Serious: Yes (Hospitalization, Other)
  Sender: FDA-Public Use
  Company Number: TR-ROXANE LABORATORIES, INC.-2010-RO-01499RO

PATIENT
  Age: 68 Year
  Sex: Female

DRUGS (2)
  1. METHOTREXATE [Suspect]
     Indication: RHEUMATOID ARTHRITIS
  2. DEFLAZACORT [Suspect]
     Indication: RHEUMATOID ARTHRITIS
     Dosage: 5 MG

REACTIONS (3)
  - GASTRITIS [None]
  - GASTRODUODENITIS HAEMORRHAGIC [None]
  - STRONGYLOIDIASIS [None]
